FAERS Safety Report 7320728-3 (Version None)
Quarter: 2011Q1

REPORT INFORMATION
  Report Type: 
  Country: None (occurrence: None)
  Receive Date: 20110228
  Receipt Date: 20110223
  Transmission Date: 20110831
  Serious: Yes (Life-Threatening, Hospitalization, Disabling)
  Sender: FDA-Public Use
  Company Number: GR-ROCHE-748560

PATIENT
  Age: 59 Year
  Sex: Female
  Weight: 85 kg

DRUGS (1)
  1. AVASTIN [Suspect]
     Indication: GASTROINTESTINAL NEOPLASM
     Route: 042
     Dates: start: 20100929

REACTIONS (3)
  - ACIDOSIS [None]
  - RENAL FAILURE ACUTE [None]
  - OLIGURIA [None]
